FAERS Safety Report 16463269 (Version 1)
Quarter: 2019Q2

REPORT INFORMATION
  Report Type: Spontaneous
  Country: US (occurrence: US)
  Receive Date: 20190621
  Receipt Date: 20190621
  Transmission Date: 20190711
  Serious: No
  Sender: FDA-Public Use
  Company Number: US-PFIZER INC-2019265076

PATIENT
  Age: 49 Year
  Sex: Male

DRUGS (5)
  1. PREGABALIN. [Suspect]
     Active Substance: PREGABALIN
     Indication: BACK PAIN
  2. PREGABALIN. [Suspect]
     Active Substance: PREGABALIN
     Indication: PAIN
  3. PREGABALIN. [Suspect]
     Active Substance: PREGABALIN
     Indication: RADICULOPATHY
     Dosage: 225 MG, 2X/DAY
     Route: 048
     Dates: start: 20190610
  4. PREGABALIN. [Suspect]
     Active Substance: PREGABALIN
     Indication: SPINAL CORD INJURY CERVICAL
  5. PREGABALIN. [Suspect]
     Active Substance: PREGABALIN
     Indication: NECK PAIN

REACTIONS (1)
  - Drug hypersensitivity [Unknown]
